FAERS Safety Report 18752931 (Version 1)
Quarter: 2021Q1

REPORT INFORMATION
  Report Type: Spontaneous
  Country: US (occurrence: US)
  Receive Date: 20210118
  Receipt Date: 20210118
  Transmission Date: 20210419
  Serious: No
  Sender: FDA-Public Use
  Company Number: US-TEVA-2021-US-1869222

PATIENT
  Age: 69 Year
  Sex: Female
  Weight: 72.57 kg

DRUGS (6)
  1. LETROZOLE. [Suspect]
     Active Substance: LETROZOLE
     Indication: BREAST CANCER
  2. AROMASIN [Suspect]
     Active Substance: EXEMESTANE
     Route: 065
     Dates: start: 202003
  3. PRAVASTATIN SODIUM. [Suspect]
     Active Substance: PRAVASTATIN SODIUM
     Route: 065
     Dates: start: 2018
  4. LETROZOLE. [Suspect]
     Active Substance: LETROZOLE
     Indication: HYPERTENSION
     Route: 065
  5. LOSARTAN. [Suspect]
     Active Substance: LOSARTAN
     Indication: BLOOD PRESSURE INCREASED
     Route: 065
  6. FEMARA [Suspect]
     Active Substance: LETROZOLE
     Route: 065

REACTIONS (4)
  - Adverse drug reaction [Unknown]
  - Drug intolerance [Unknown]
  - Hypoaesthesia [Unknown]
  - Weight increased [Unknown]
